FAERS Safety Report 8509623-1 (Version None)
Quarter: 2012Q3

REPORT INFORMATION
  Report Type: 
  Country: None (occurrence: None)
  Receive Date: 20120713
  Receipt Date: 20120709
  Transmission Date: 20120928
  Serious: Yes (Death, Life-Threatening, Hospitalization)
  Sender: FDA-Public Use
  Company Number: US-JNJFOC-20120704791

PATIENT
  Age: 73 Year
  Sex: Female

DRUGS (1)
  1. NUCYNTA [Suspect]
     Indication: PRODUCT USED FOR UNKNOWN INDICATION
     Dosage: 1 DOSE EVERY 6 TO 8 HOURS
     Route: 065

REACTIONS (8)
  - TOXICITY TO VARIOUS AGENTS [None]
  - MYOCARDIAL INFARCTION [None]
  - ACUTE LUNG INJURY [None]
  - APNOEA [None]
  - HYPOXIA [None]
  - RESPIRATORY DEPRESSION [None]
  - COMA [None]
  - BRADYCARDIA [None]
